FAERS Safety Report 23142129 (Version 3)
Quarter: 2025Q4

REPORT INFORMATION
  Report Type: Report from Study
  Country: KR (occurrence: KR)
  Receive Date: 20231103
  Receipt Date: 20251219
  Transmission Date: 20260118
  Serious: Yes (Death, Other)
  Sender: ROCHE
  Company Number: KR-ROCHE-3450331

PATIENT

DRUGS (3)
  1. ATEZOLIZUMAB [Suspect]
     Active Substance: ATEZOLIZUMAB
     Indication: Small cell lung cancer extensive stage
  2. ETOPOSIDE [Suspect]
     Active Substance: ETOPOSIDE
     Indication: Small cell lung cancer extensive stage
  3. CARBOPLATIN [Suspect]
     Active Substance: CARBOPLATIN
     Indication: Small cell lung cancer extensive stage

REACTIONS (26)
  - Neutropenia [Fatal]
  - Pneumonia [Fatal]
  - Aspartate aminotransferase increased [Unknown]
  - Haematemesis [Unknown]
  - Ileus paralytic [Unknown]
  - Pleural effusion [Unknown]
  - Enterocolitis [Unknown]
  - Hepatitis [Unknown]
  - Colitis [Unknown]
  - Decreased appetite [Unknown]
  - Asthenia [Unknown]
  - Rash [Unknown]
  - Pruritus [Unknown]
  - Nausea [Unknown]
  - Alanine aminotransferase increased [Unknown]
  - Vomiting [Unknown]
  - Constipation [Unknown]
  - Cough [Unknown]
  - Hyponatraemia [Unknown]
  - Neuropathy peripheral [Unknown]
  - Hypothyroidism [Unknown]
  - Fatigue [Unknown]
  - Hyperglycaemia [Unknown]
  - Diabetes mellitus [Unknown]
  - Pneumonitis [Unknown]
  - Adrenal insufficiency [Unknown]
